FAERS Safety Report 22015294 (Version 1)
Quarter: 2023Q1

REPORT INFORMATION
  Report Type: Spontaneous
  Country: SE (occurrence: SE)
  Receive Date: 20230221
  Receipt Date: 20230221
  Transmission Date: 20230418
  Serious: Yes (Other)
  Sender: FDA-Public Use
  Company Number: None

PATIENT
  Age: 51 Year
  Sex: Male
  Weight: 106 kg

DRUGS (5)
  1. KEPPRA [Suspect]
     Active Substance: LEVETIRACETAM
     Indication: Seizure
     Dosage: 1000 MILLIGRAM, ONCE DAILY (QD) 500MG 1X2
     Route: 048
     Dates: start: 20211110
  2. ATORVASTATIN [Concomitant]
     Active Substance: ATORVASTATIN
     Indication: Product used for unknown indication
     Dosage: 10 MG 1 X 1
     Route: 048
     Dates: start: 2013
  3. METFORMIN EQL PHARMA [Concomitant]
     Indication: Product used for unknown indication
     Dosage: 500 MG 2 X 2
     Route: 048
     Dates: start: 2013
  4. LOSARTAN ^AGP^ [Concomitant]
     Indication: Product used for unknown indication
     Dosage: 50 MG 1 X 1
     Route: 048
  5. SEMAGLUTIDE [Concomitant]
     Active Substance: SEMAGLUTIDE
     Indication: Product used for unknown indication
     Dosage: UNK
     Route: 048
     Dates: start: 20191130

REACTIONS (2)
  - Seizure [Unknown]
  - Product dose omission issue [Unknown]

NARRATIVE: CASE EVENT DATE: 20220102
